FAERS Safety Report 9809267 (Version 1)
Quarter: 2014Q1

REPORT INFORMATION
  Report Type: Spontaneous
  Country: US (occurrence: US)
  Receive Date: 20140110
  Receipt Date: 20140110
  Transmission Date: 20141002
  Serious: Yes (Hospitalization)
  Sender: FDA-Public Use
  Company Number: US-B.I. PHARMACEUTICALS,INC./RIDGEFIELD-2014-BI-00946BP

PATIENT
  Sex: Female

DRUGS (2)
  1. PRADAXA [Suspect]
     Route: 048
  2. PRADAXA [Suspect]
     Route: 048

REACTIONS (2)
  - Haemorrhage [Unknown]
  - Haematochezia [Unknown]
